FAERS Safety Report 9575061 (Version 2)
Quarter: 2013Q4

REPORT INFORMATION
  Report Type: Spontaneous
  Country: AU (occurrence: AU)
  Receive Date: 20131001
  Receipt Date: 20131031
  Transmission Date: 20140711
  Serious: Yes (Hospitalization)
  Sender: FDA-Public Use
  Company Number: AU-ASTRAZENECA-2013SE71476

PATIENT
  Age: 33 Year
  Sex: Male

DRUGS (2)
  1. SEROQUEL [Suspect]
     Route: 048
  2. ALCOHOL [Concomitant]

REACTIONS (3)
  - Overdose [Unknown]
  - Loss of consciousness [Unknown]
  - Unresponsive to stimuli [Unknown]
